FAERS Safety Report 6469442-7 (Version None)
Quarter: 2009Q4

REPORT INFORMATION
  Report Type: 
  Country: None (occurrence: None)
  Receive Date: 20091203
  Receipt Date: 20091125
  Transmission Date: 20100525
  Serious: Yes (Other)
  Sender: FDA-Public Use
  Company Number: US-AMGEN-TCS371292

PATIENT
  Sex: Female
  Weight: 52.7 kg

DRUGS (6)
  1. ENBREL [Suspect]
     Indication: RHEUMATOID ARTHRITIS
     Route: 058
     Dates: start: 20091007, end: 20091101
  2. PLAQUENIL [Concomitant]
     Route: 048
  3. PREDNISONE [Concomitant]
  4. SALAGEN [Concomitant]
  5. FISH OIL [Concomitant]
  6. FLEXERIL [Concomitant]

REACTIONS (9)
  - CELLULITIS [None]
  - DRUG HYPERSENSITIVITY [None]
  - HAND DEFORMITY [None]
  - INJECTION SITE ERYTHEMA [None]
  - JOINT SWELLING [None]
  - PAIN [None]
  - PAIN IN EXTREMITY [None]
  - RHEUMATOID ARTHRITIS [None]
  - TREMOR [None]
